FAERS Safety Report 5498900-7 (Version None)
Quarter: 2007Q4

REPORT INFORMATION
  Report Type: 
  Country: None (occurrence: None)
  Receive Date: 20071026
  Receipt Date: 20070801
  Transmission Date: 20080405
  Serious: No
  Sender: FDA-Public Use
  Company Number: A0667939A

PATIENT
  Age: 70 Year
  Sex: Female

DRUGS (6)
  1. ADVAIR DISKUS 100/50 [Suspect]
     Indication: CHRONIC OBSTRUCTIVE PULMONARY DISEASE
     Route: 055
  2. OXYGEN [Concomitant]
  3. SPIRIVA [Concomitant]
  4. ALBUTEROL [Concomitant]
  5. PLAQUENIL [Concomitant]
  6. UNSPECIFIED MEDICATION [Concomitant]

REACTIONS (4)
  - ADVERSE EVENT [None]
  - DRY SKIN [None]
  - PRURITUS [None]
  - SKIN EXFOLIATION [None]
